FAERS Safety Report 12677046 (Version 1)
Quarter: 2016Q3

REPORT INFORMATION
  Report Type: Spontaneous
  Country: US (occurrence: US)
  Receive Date: 20160823
  Receipt Date: 20160823
  Transmission Date: 20161109
  Serious: No
  Sender: FDA-Public Use
  Company Number: US-MYLANLABS-2015M1039460

PATIENT
  Age: 58 Year
  Sex: Male

DRUGS (4)
  1. METFORMIN HEXAL PHARMA [Concomitant]
     Indication: DIABETES MELLITUS
     Dosage: UNK
  2. CLONIDINE TRANSDERMAL SYSTEM [Suspect]
     Active Substance: CLONIDINE
     Indication: BLOOD PRESSURE MEASUREMENT
     Dosage: 0.1 MG, QD, CHANGED QWK
     Route: 062
     Dates: start: 201510, end: 20151108
  3. CHLORDIAZEPOXIDE HYDROCHLORIDE. [Suspect]
     Active Substance: CHLORDIAZEPOXIDE HYDROCHLORIDE
     Indication: ANXIETY
     Dosage: UNK
     Dates: start: 201510
  4. OLANZAPINE. [Suspect]
     Active Substance: OLANZAPINE
     Indication: ANXIETY
     Dosage: 10 MG, AM
     Route: 048
     Dates: start: 201510, end: 20151109

REACTIONS (2)
  - Blood glucose increased [Not Recovered/Not Resolved]
  - Increased appetite [Not Recovered/Not Resolved]

NARRATIVE: CASE EVENT DATE: 201510
